FAERS Safety Report 8122206-0 (Version None)
Quarter: 2012Q1

REPORT INFORMATION
  Report Type: 
  Country: None (occurrence: None)
  Receive Date: 20120208
  Receipt Date: 20120130
  Transmission Date: 20120608
  Serious: Yes (Hospitalization, Other)
  Sender: FDA-Public Use
  Company Number: US-BAYER-2011-090711

PATIENT
  Age: 49 Year
  Sex: Female
  Weight: 88.435 kg

DRUGS (11)
  1. YAZ [Suspect]
     Dosage: UNK
     Dates: start: 20070101, end: 20090101
  2. XANAX [Concomitant]
     Dosage: 125 ?G, QID
  3. PROZAC [Concomitant]
     Dosage: 40 MG, QD
  4. DROSPIRENONE AND ETHINYL ESTRADIOL [Suspect]
     Dosage: UNK
     Dates: start: 20070101, end: 20090201
  5. YASMIN [Suspect]
     Dosage: UNK
     Dates: start: 20070101, end: 20090201
  6. VICODIN [Concomitant]
  7. REQUIP [Concomitant]
     Dosage: 1 MG, QD
  8. VITAMIN TAB [Concomitant]
  9. GEODON [Concomitant]
     Dosage: 160 MG, QD
  10. MULTI-VITAMIN [Concomitant]
     Dosage: 1 DF, QD
  11. NEXIUM [Concomitant]

REACTIONS (5)
  - PULMONARY EMBOLISM [None]
  - PAIN [None]
  - INJURY [None]
  - THROMBOSIS [None]
  - DEFORMITY [None]
